FAERS Safety Report 24557064 (Version 2)
Quarter: 2024Q4

REPORT INFORMATION
  Report Type: Spontaneous
  Country: FR (occurrence: FR)
  Receive Date: 20241028
  Receipt Date: 20241218
  Transmission Date: 20250114
  Serious: Yes (Death, Other)
  Sender: AUROBINDO
  Company Number: FR-CHEPLA-2024012896

PATIENT
  Age: 51 Year
  Sex: Female

DRUGS (20)
  1. CAPECITABINE [Suspect]
     Active Substance: CAPECITABINE
     Indication: HER2 positive breast cancer
     Dosage: UNK
     Route: 065
     Dates: start: 200701
  2. CAPECITABINE [Suspect]
     Active Substance: CAPECITABINE
     Indication: Chemotherapy
  3. CAPECITABINE [Suspect]
     Active Substance: CAPECITABINE
     Indication: Invasive ductal breast carcinoma
  4. DOCETAXEL [Suspect]
     Active Substance: DOCETAXEL
     Indication: HER2 positive breast cancer
     Dosage: 75 MILLIGRAM/SQ. METER, EVERY 21 DAYS
     Route: 065
     Dates: start: 200708
  5. DOCETAXEL [Suspect]
     Active Substance: DOCETAXEL
     Indication: Invasive ductal breast carcinoma
  6. EPIRUBICIN [Suspect]
     Active Substance: EPIRUBICIN
     Indication: HER2 positive breast cancer
     Dosage: 50 MILLIGRAM/SQ. METER
     Route: 065
     Dates: start: 200603
  7. VINORELBINE [Suspect]
     Active Substance: VINORELBINE TARTRATE
     Indication: HER2 positive breast cancer
     Dosage: UNK
     Route: 065
     Dates: start: 200603
  8. VINORELBINE [Suspect]
     Active Substance: VINORELBINE TARTRATE
     Indication: Chemotherapy
  9. AFLIBERCEPT [Suspect]
     Active Substance: AFLIBERCEPT
     Indication: HER2 positive breast cancer
     Dosage: 2 MILLIGRAM/KILOGRAM
     Route: 065
     Dates: start: 200708
  10. AFLIBERCEPT [Suspect]
     Active Substance: AFLIBERCEPT
     Indication: Invasive ductal breast carcinoma
  11. FLUOROURACIL [Suspect]
     Active Substance: FLUOROURACIL
     Indication: HER2 positive breast cancer
     Dosage: UNK
     Route: 065
     Dates: start: 200603
  12. CYCLOPHOSPHAMIDE [Suspect]
     Active Substance: CYCLOPHOSPHAMIDE
     Indication: HER2 positive breast cancer
     Dosage: UNK
     Route: 065
     Dates: start: 200603
  13. CYCLOPHOSPHAMIDE [Suspect]
     Active Substance: CYCLOPHOSPHAMIDE
     Dosage: UNK
     Route: 048
     Dates: start: 200803
  14. LAPATINIB [Suspect]
     Active Substance: LAPATINIB
     Indication: HER2 positive breast cancer
     Dosage: UNK
     Route: 065
     Dates: start: 200705
  15. LAPATINIB [Suspect]
     Active Substance: LAPATINIB
     Indication: Chemotherapy
  16. LAPATINIB [Suspect]
     Active Substance: LAPATINIB
     Indication: Breast cancer metastatic
  17. METHOTREXATE [Suspect]
     Active Substance: METHOTREXATE
     Indication: HER2 positive breast cancer
     Dosage: UNK
     Route: 065
     Dates: start: 200803
  18. TRASTUZUMAB [Suspect]
     Active Substance: TRASTUZUMAB
     Indication: HER2 positive breast cancer
     Dosage: UNK
     Route: 065
     Dates: start: 200603
  19. TRASTUZUMAB [Suspect]
     Active Substance: TRASTUZUMAB
     Indication: Chemotherapy
  20. TRASTUZUMAB [Suspect]
     Active Substance: TRASTUZUMAB
     Indication: Invasive ductal breast carcinoma

REACTIONS (8)
  - Invasive ductal breast carcinoma [Fatal]
  - Malignant neoplasm progression [Fatal]
  - Metastases to central nervous system [Unknown]
  - Lymphangiosis carcinomatosa [Unknown]
  - Palmar-plantar erythrodysaesthesia syndrome [Unknown]
  - Anaemia [Unknown]
  - Hyperthermia [Unknown]
  - Asthenia [Unknown]

NARRATIVE: CASE EVENT DATE: 20080601
